FAERS Safety Report 5607100-9 (Version None)
Quarter: 2008Q1

REPORT INFORMATION
  Report Type: 
  Country: None (occurrence: None)
  Receive Date: 20080129
  Receipt Date: 20080122
  Transmission Date: 20080703
  Serious: Yes (Disabling)
  Sender: FDA-Public Use
  Company Number: AU-PFIZER INC-2007108611

PATIENT
  Sex: Female

DRUGS (1)
  1. SUTENT [Suspect]
     Indication: RENAL CELL CARCINOMA
     Route: 048

REACTIONS (8)
  - ADVERSE DRUG REACTION [None]
  - DIARRHOEA [None]
  - DRUG TOXICITY [None]
  - HEPATOTOXICITY [None]
  - LETHARGY [None]
  - NAUSEA [None]
  - RASH [None]
  - VOMITING [None]
